FAERS Safety Report 19084265 (Version 1)
Quarter: 2021Q2

REPORT INFORMATION
  Report Type: Spontaneous
  Country: US (occurrence: US)
  Receive Date: 20210401
  Receipt Date: 20210401
  Transmission Date: 20210717
  Serious: Yes (Other)
  Sender: FDA-Public Use
  Company Number: US-PURDUE-USA-2020-0229701

PATIENT
  Sex: Male

DRUGS (4)
  1. HYDROCODONE BITARTRATE AND ACETAMINOPHEN [Suspect]
     Active Substance: ACETAMINOPHEN\HYDROCODONE BITARTRATE
     Indication: PRODUCT USED FOR UNKNOWN INDICATION
     Dosage: UNK
     Route: 048
  2. OXYCODONE/ ACETAMINOPHEN TABLETS [Suspect]
     Active Substance: ACETAMINOPHEN\OXYCODONE HYDROCHLORIDE
     Indication: PRODUCT USED FOR UNKNOWN INDICATION
     Dosage: UNK
     Route: 048
  3. PERCODAN [Suspect]
     Active Substance: ASPIRIN\OXYCODONE HYDROCHLORIDE
     Indication: PRODUCT USED FOR UNKNOWN INDICATION
     Dosage: UNK
     Route: 065
  4. TRAMADOL CR TABLETS (RHODES 21?745) [Suspect]
     Active Substance: TRAMADOL
     Indication: PRODUCT USED FOR UNKNOWN INDICATION
     Dosage: UNK
     Route: 048

REACTIONS (26)
  - Dyspepsia [Unknown]
  - Arthralgia [Unknown]
  - Chest discomfort [Unknown]
  - Nervousness [Unknown]
  - Mood altered [Unknown]
  - Cognitive disorder [Unknown]
  - Irritability [Unknown]
  - Tension [Unknown]
  - Unevaluable event [Unknown]
  - Learning disability [Unknown]
  - Neuropathy peripheral [Unknown]
  - Prostatitis [Unknown]
  - Anxiety [Unknown]
  - Weight fluctuation [Unknown]
  - Muscle spasms [Unknown]
  - Fatigue [Unknown]
  - Asthenia [Unknown]
  - Confusional state [Unknown]
  - Pain [Unknown]
  - Drug dependence [Unknown]
  - Intestinal haemorrhage [Unknown]
  - Angina pectoris [Unknown]
  - Stress [Unknown]
  - Disturbance in attention [Unknown]
  - Frustration tolerance decreased [Unknown]
  - Myalgia [Unknown]
